FAERS Safety Report 12500521 (Version 1)
Quarter: 2016Q2

REPORT INFORMATION
  Report Type: Spontaneous
  Country: GB (occurrence: GB)
  Receive Date: 20160627
  Receipt Date: 20160627
  Transmission Date: 20160815
  Serious: Yes (Other)
  Sender: FDA-Public Use
  Company Number: US-BRAINTREE LABORATORIES-160466

PATIENT
  Age: 74 Year
  Sex: Female

DRUGS (1)
  1. IZINOVA [Suspect]
     Active Substance: MAGNESIUM SULFATE\POTASSIUM SULFATE\SODIUM SULFATE
     Indication: COLONOSCOPY
     Dosage: 1 X 6 OZ. BOTTLE
     Route: 048
     Dates: start: 20160411, end: 20160411

REACTIONS (4)
  - Nausea [None]
  - Vomiting [None]
  - Blood bicarbonate decreased [None]
  - Atrial tachycardia [None]

NARRATIVE: CASE EVENT DATE: 20160411
